FAERS Safety Report 6477216-6 (Version None)
Quarter: 2009Q4

REPORT INFORMATION
  Report Type: 
  Country: None (occurrence: None)
  Receive Date: 20091204
  Receipt Date: 20091204
  Transmission Date: 20100525
  Serious: Yes (Other)
  Sender: FDA-Public Use
  Company Number: None

PATIENT
  Age: 42 Year
  Sex: Female
  Weight: 74.3899 kg

DRUGS (1)
  1. MIRENA [Suspect]
     Indication: MENSTRUATION IRREGULAR
     Dates: start: 20090924, end: 20091203

REACTIONS (8)
  - BREAST ENLARGEMENT [None]
  - BREAST PAIN [None]
  - COMPLICATION OF DEVICE INSERTION [None]
  - HAEMORRHAGE [None]
  - INCREASED APPETITE [None]
  - NAUSEA [None]
  - PAIN [None]
  - URINARY INCONTINENCE [None]
